FAERS Safety Report 16623307 (Version 2)
Quarter: 2019Q3

REPORT INFORMATION
  Report Type: Spontaneous
  Country: AU (occurrence: AU)
  Receive Date: 20190724
  Receipt Date: 20190814
  Transmission Date: 20191004
  Serious: Yes (Other)
  Sender: FDA-Public Use
  Company Number: AU-ROCHE-2360596

PATIENT
  Sex: Male

DRUGS (2)
  1. RITUXIMAB. [Suspect]
     Active Substance: RITUXIMAB
     Indication: HAIRY CELL LEUKAEMIA
     Route: 042
  2. CLADRIBINE. [Suspect]
     Active Substance: CLADRIBINE
     Indication: HAIRY CELL LEUKAEMIA
     Route: 065

REACTIONS (1)
  - Myelodysplastic syndrome [Unknown]
